FAERS Safety Report 4391428-7 (Version None)
Quarter: 2004Q3

REPORT INFORMATION
  Report Type: 
  Country: None (occurrence: None)
  Receive Date: 20040707
  Receipt Date: 20030804
  Transmission Date: 20050211
  Serious: Yes (Disabling)
  Sender: FDA-Public Use
  Company Number: NO-GLAXOSMITHKLINE-B0305871A

PATIENT
  Age: 57 Year
  Sex: Male

DRUGS (7)
  1. IMIGRAN [Suspect]
     Route: 042
     Dates: start: 19920101, end: 20030301
  2. OXYGEN [Concomitant]
  3. CORTISONE [Concomitant]
  4. LITAREX [Concomitant]
  5. ISOPTIN TAB [Concomitant]
  6. MELATONIN [Concomitant]
  7. NEURONTIN [Concomitant]

REACTIONS (3)
  - FEELING COLD [None]
  - LIBIDO DECREASED [None]
  - PARAESTHESIA [None]
